FAERS Safety Report 8270581-9 (Version None)
Quarter: 2012Q2

REPORT INFORMATION
  Report Type: 
  Country: None (occurrence: None)
  Receive Date: 20120410
  Receipt Date: 20120330
  Transmission Date: 20120825
  Serious: Yes (Hospitalization)
  Sender: FDA-Public Use
  Company Number: FR-BRISTOL-MYERS SQUIBB COMPANY-16497992

PATIENT
  Age: 43 Year
  Sex: Female

DRUGS (9)
  1. VALDOXAN [Concomitant]
     Indication: DEPRESSION
     Route: 048
     Dates: start: 20111201, end: 20120112
  2. VALDOXAN [Concomitant]
  3. LORAZEPAM [Concomitant]
  4. RISPERDAL [Concomitant]
  5. ABILIFY [Suspect]
     Indication: SCHIZOTYPAL PERSONALITY DISORDER
     Dosage: 1DF= 1 TAB
     Route: 048
     Dates: start: 20111201, end: 20120112
  6. TRIMEPRAZINE TARTRATE [Concomitant]
  7. CITALOPRAM HYDROBROMIDE [Interacting]
     Indication: DEPRESSION
     Dosage: 1 DF:20MG/0.5ML. INFUSION: 2
     Route: 042
     Dates: start: 20120117, end: 20120118
  8. HALDOL [Concomitant]
  9. LOXAPINE HCL [Concomitant]

REACTIONS (3)
  - EXTRAPYRAMIDAL DISORDER [None]
  - DRUG INTERACTION [None]
  - SEROTONIN SYNDROME [None]
